FAERS Safety Report 16730056 (Version 1)
Quarter: 2019Q4

REPORT INFORMATION
  Report Type: Spontaneous
  Country: US (occurrence: US)
  Receive Date: 20190821
  Receipt Date: 20190821
  Transmission Date: 20200122
  Serious: Yes (Hospitalization)
  Sender: FDA-Public Use
  Company Number: None

PATIENT
  Sex: Male

DRUGS (1)
  1. MITOMYCIN. [Suspect]
     Active Substance: MITOMYCIN
     Indication: BLADDER CANCER
     Dosage: ?          OTHER FREQUENCY:QWK FOR 6 WKS;?
     Route: 043
     Dates: start: 20170329

REACTIONS (2)
  - Neoplasm [None]
  - Bladder lesion excision [None]
